FAERS Safety Report 5455257-5 (Version None)
Quarter: 2007Q3

REPORT INFORMATION
  Report Type: 
  Country: None (occurrence: None)
  Receive Date: 20070918
  Receipt Date: 20070828
  Transmission Date: 20080115
  Serious: No
  Sender: FDA-Public Use
  Company Number: US-JNJFOC-20070806307

PATIENT
  Age: 50 Year
  Sex: Female

DRUGS (2)
  1. INVEGA [Suspect]
     Indication: DRUG USE FOR UNKNOWN INDICATION
     Route: 048
  2. KLONOPIN [Concomitant]

REACTIONS (2)
  - FLUID RETENTION [None]
  - JOINT SWELLING [None]
